FAERS Safety Report 11064429 (Version 4)
Quarter: 2015Q3

REPORT INFORMATION
  Report Type: Spontaneous
  Country: US (occurrence: US)
  Receive Date: 20150424
  Receipt Date: 20150821
  Transmission Date: 20151125
  Serious: Yes (Hospitalization, Other)
  Sender: FDA-Public Use
  Company Number: US-GLAXOSMITHKLINE-US2015054959

PATIENT
  Age: 59 Year
  Sex: Female

DRUGS (15)
  1. BISOPROLOL [Concomitant]
     Active Substance: BISOPROLOL
  2. TRAMADOL. [Concomitant]
     Active Substance: TRAMADOL
  3. NORVASC [Concomitant]
     Active Substance: AMLODIPINE BESYLATE
  4. VENTOLIN [Concomitant]
     Active Substance: ALBUTEROL SULFATE
  5. PROMACTA [Suspect]
     Active Substance: ELTROMBOPAG OLAMINE
     Indication: BLOOD DISORDER
     Dosage: 25 MG, QD
     Route: 048
     Dates: start: 20141117
  6. IPRATROPIUM [Concomitant]
     Active Substance: IPRATROPIUM
  7. NITROGLYCERINE [Concomitant]
     Active Substance: NITROGLYCERIN
  8. OMEPRAZOLE. [Concomitant]
     Active Substance: OMEPRAZOLE
  9. POTASSIUM CHLORIDE. [Concomitant]
     Active Substance: POTASSIUM CHLORIDE
  10. PROMACTA [Suspect]
     Active Substance: ELTROMBOPAG OLAMINE
     Indication: IMMUNE THROMBOCYTOPENIC PURPURA
     Dosage: UNK
  11. AMITRIPTYLINE [Concomitant]
     Active Substance: AMITRIPTYLINE
  12. SPIRONOLACTONE. [Concomitant]
     Active Substance: SPIRONOLACTONE
  13. FUROSEMIDE. [Concomitant]
     Active Substance: FUROSEMIDE
  14. GABAPENTIN. [Concomitant]
     Active Substance: GABAPENTIN
  15. LACTULOSE. [Concomitant]
     Active Substance: LACTULOSE

REACTIONS (8)
  - Dyspnoea [Unknown]
  - Confusional state [Recovered/Resolved]
  - Chronic obstructive pulmonary disease [Recovered/Resolved]
  - Loss of consciousness [Unknown]
  - Respiratory tract irritation [Unknown]
  - Asthma [Unknown]
  - Haemoptysis [Unknown]
  - Cough [Recovered/Resolved with Sequelae]

NARRATIVE: CASE EVENT DATE: 20150420
